APPROVED DRUG PRODUCT: TRAZODONE HYDROCHLORIDE
Active Ingredient: TRAZODONE HYDROCHLORIDE
Strength: 150MG
Dosage Form/Route: TABLET;ORAL
Application: A071525 | Product #001 | TE Code: AB
Applicant: PLIVA INC
Approved: Mar 9, 1988 | RLD: No | RS: No | Type: RX